FAERS Safety Report 7352625-1 (Version None)
Quarter: 2011Q1

REPORT INFORMATION
  Report Type: 
  Country: None (occurrence: None)
  Receive Date: 20110301
  Receipt Date: 20100127
  Transmission Date: 20110831
  Serious: Yes (Hospitalization)
  Sender: FDA-Public Use
  Company Number: RB-01559-2010

PATIENT
  Age: 34 Year
  Sex: Female

DRUGS (4)
  1. SUBUTEX [Suspect]
     Indication: DRUG DEPENDENCE
     Dosage: (8 MG QD SUBLINGUAL)
     Route: 060
     Dates: start: 20090101, end: 20100330
  2. SUBOXONE [Suspect]
     Indication: DRUG DEPENDENCE
     Dosage: (8 MG SUBLINGUAL), (8 MG QD SUBLINGUAL), (DOSING DETAILS UNKNOWN SUBLINGUAL)
     Route: 060
     Dates: start: 20100401, end: 20100401
  3. SUBOXONE [Suspect]
     Indication: DRUG DEPENDENCE
     Dosage: (8 MG SUBLINGUAL), (8 MG QD SUBLINGUAL), (DOSING DETAILS UNKNOWN SUBLINGUAL)
     Route: 060
     Dates: start: 20090101, end: 20090301
  4. SUBOXONE [Suspect]
     Indication: DRUG DEPENDENCE
     Dosage: (8 MG SUBLINGUAL), (8 MG QD SUBLINGUAL), (DOSING DETAILS UNKNOWN SUBLINGUAL)
     Route: 060
     Dates: start: 20100101

REACTIONS (2)
  - INFECTION [None]
  - PAIN [None]
